FAERS Safety Report 5854785-8 (Version None)
Quarter: 2008Q3

REPORT INFORMATION
  Report Type: 
  Country: None (occurrence: None)
  Receive Date: 20080822
  Receipt Date: 20080812
  Transmission Date: 20090109
  Serious: Yes (Other)
  Sender: FDA-Public Use
  Company Number: US-PFIZER INC-2008067952

PATIENT
  Sex: Male

DRUGS (15)
  1. CHANTIX [Suspect]
     Indication: SMOKING CESSATION THERAPY
  2. LYRICA [Interacting]
     Indication: PAIN
  3. AMITRIPTYLINE HYDROCHLORIDE [Interacting]
     Indication: DEPRESSION
  4. LISINOPRIL [Interacting]
     Indication: HYPERTENSION
  5. METFORMIN [Interacting]
     Indication: DIABETES MELLITUS
  6. ISOSORBIDE [Interacting]
  7. LEXAPRO [Interacting]
     Indication: DEPRESSION
  8. VYTORIN [Interacting]
     Indication: HYPERCHOLESTEROLAEMIA
     Dosage: TEXT:10/20
  9. COMBIVENT [Interacting]
     Indication: DYSPNOEA
     Dosage: TEXT:2 PUFFS THREE TIMES A DAY
  10. SYNTHROID [Interacting]
     Indication: HYPOTHYROIDISM
  11. CILOSTAZOL [Interacting]
  12. COREG [Interacting]
     Indication: HYPERTENSION
  13. PLAVIX [Interacting]
  14. ACTOS [Interacting]
     Indication: DIABETES MELLITUS
  15. OXYCODONE HCL [Interacting]
     Indication: PAIN

REACTIONS (3)
  - DRUG INTERACTION [None]
  - MENTAL DISORDER [None]
  - OVERDOSE [None]
